FAERS Safety Report 6845854-4 (Version None)
Quarter: 2010Q3

REPORT INFORMATION
  Report Type: 
  Country: None (occurrence: None)
  Receive Date: 20100715
  Receipt Date: 20070828
  Transmission Date: 20110219
  Serious: No
  Sender: FDA-Public Use
  Company Number: US-PFIZER INC-2007073039

PATIENT
  Sex: Female
  Weight: 55.8 kg

DRUGS (5)
  1. CHANTIX [Suspect]
     Indication: SMOKING CESSATION THERAPY
     Route: 048
     Dates: start: 20070818
  2. PREMPRO [Concomitant]
  3. DILTIAZEM HYDROCHLORIDE [Concomitant]
  4. BENADRYL [Concomitant]
  5. ADVAIR DISKUS 100/50 [Concomitant]

REACTIONS (3)
  - CONSTIPATION [None]
  - DIZZINESS [None]
  - NAUSEA [None]
